FAERS Safety Report 6584729-5 (Version None)
Quarter: 2010Q1

REPORT INFORMATION
  Report Type: 
  Country: None (occurrence: None)
  Receive Date: 20100217
  Receipt Date: 20100205
  Transmission Date: 20100710
  Serious: Yes (Other)
  Sender: FDA-Public Use
  Company Number: PHHY2010DE07342

PATIENT
  Age: 70 Year
  Sex: Male

DRUGS (1)
  1. EUCREAS [Suspect]
     Indication: DIABETES MELLITUS
     Dosage: UNK
     Route: 048
     Dates: start: 20090101, end: 20091201

REACTIONS (7)
  - ABDOMINAL PAIN [None]
  - CONCOMITANT DISEASE AGGRAVATED [None]
  - HEPATIC CIRRHOSIS [None]
  - NAUSEA [None]
  - PANCREATIC CARCINOMA [None]
  - PANCREATITIS [None]
  - WEIGHT DECREASED [None]
